FAERS Safety Report 4373591-7 (Version None)
Quarter: 2004Q1

REPORT INFORMATION
  Report Type: 
  Country: None (occurrence: None)
  Receive Date: 20040305
  Receipt Date: 20030925
  Transmission Date: 20041129
  Serious: Yes (Other)
  Sender: FDA-Public Use
  Company Number: 2003UW12411

PATIENT
  Sex: Male

DRUGS (2)
  1. CRESTOR [Suspect]
     Dosage: 10 MG QD PO
     Route: 048
  2. ZOCOR [Concomitant]

REACTIONS (3)
  - GINGIVITIS [None]
  - JAW INFLAMMATION [None]
  - NAUSEA [None]
